FAERS Safety Report 15324887 (Version 2)
Quarter: 2018Q3

REPORT INFORMATION
  Report Type: Spontaneous
  Country: DE (occurrence: DE)
  Receive Date: 20180828
  Receipt Date: 20180911
  Transmission Date: 20181010
  Serious: No
  Sender: FDA-Public Use
  Company Number: DE-CELLTRION INC.-2018DE022022

PATIENT

DRUGS (2)
  1. METEX                              /00082702/ [Concomitant]
     Active Substance: METFORMIN HYDROCHLORIDE
     Dosage: 20 MG
     Dates: start: 20140915
  2. REMSIMA [Suspect]
     Active Substance: INFLIXIMAB
     Indication: PSORIASIS
     Dosage: 7.37 MG/KG, EVERY 8 WEEKS
     Route: 065
     Dates: start: 20150311, end: 20150311

REACTIONS (1)
  - Incorrect dose administered [Unknown]
